FAERS Safety Report 4935041-9 (Version None)
Quarter: 2006Q1

REPORT INFORMATION
  Report Type: 
  Country: None (occurrence: None)
  Receive Date: 20060303
  Receipt Date: 20060303
  Transmission Date: 20060701
  Serious: Yes (Death)
  Sender: FDA-Public Use
  Company Number: None

PATIENT
  Age: 44 Year
  Sex: Female
  Weight: 56.6996 kg

DRUGS (1)
  1. DURAGESIC-100 [Suspect]
     Indication: PAIN
     Dosage: 1 PATCH/72 HOURS EPIDURAL
     Route: 008

REACTIONS (3)
  - ACCIDENTAL DEATH [None]
  - DRUG INTERACTION [None]
  - TOXICOLOGIC TEST ABNORMAL [None]
